FAERS Safety Report 16996889 (Version 1)
Quarter: 2019Q4

REPORT INFORMATION
  Report Type: Spontaneous
  Country: US (occurrence: US)
  Receive Date: 20190923
  Receipt Date: 20190923
  Transmission Date: 20200122
  Serious: Yes (Hospitalization)
  Sender: FDA-Public Use
  Company Number: None

PATIENT
  Age: 71 Year
  Sex: Male
  Weight: 113.13 kg

DRUGS (1)
  1. ATORVASTATIN [Suspect]
     Active Substance: ATORVASTATIN
     Indication: HYPERLIPIDAEMIA
     Route: 048
     Dates: start: 20190311, end: 20190401

REACTIONS (11)
  - Dehydration [None]
  - Asthenia [None]
  - Hepatic enzyme increased [None]
  - Chromaturia [None]
  - Fatigue [None]
  - Dizziness [None]
  - Jaundice [None]
  - Decreased appetite [None]
  - Hypophagia [None]
  - Faeces pale [None]
  - Urine odour abnormal [None]

NARRATIVE: CASE EVENT DATE: 20190331
